FAERS Safety Report 21246983 (Version 2)
Quarter: 2022Q4

REPORT INFORMATION
  Report Type: Report from Study
  Country: KR (occurrence: None)
  Receive Date: 20220824
  Receipt Date: 20221014
  Transmission Date: 20230112
  Serious: Yes (Hospitalization)
  Sender: FDA-Public Use
  Company Number: KR-ROCHE-3163573

PATIENT
  Age: 76 Year
  Sex: Male
  Weight: 55 kg

DRUGS (71)
  1. ATEZOLIZUMAB [Suspect]
     Active Substance: ATEZOLIZUMAB
     Indication: Non-small cell lung cancer metastatic
     Dosage: START DATE OF MOST RECENT DOSE OF STUDY DRUG PRIOR TO AE AND SAE ON 09/AUG/2022?DOSE LAST STUDY DRUG
     Route: 041
     Dates: start: 20210520
  2. CABOZANTINIB [Suspect]
     Active Substance: CABOZANTINIB
     Indication: Non-small cell lung cancer metastatic
     Dosage: DOSE LAST STUDY DRUG ADMIN PRIOR AE IS 20 MG?DOSE LAST STUDY DRUG ADMIN PRIOR SAE IS 20 MG
     Route: 048
     Dates: start: 20210520
  3. LINAGLIPTIN\METFORMIN HYDROCHLORIDE [Concomitant]
     Active Substance: LINAGLIPTIN\METFORMIN HYDROCHLORIDE
     Indication: Type 2 diabetes mellitus
     Dates: start: 20181212, end: 20220713
  4. LEVOTHYROXINE SODIUM [Concomitant]
     Active Substance: LEVOTHYROXINE SODIUM
     Indication: Hypothyroidism
     Dosage: NO
     Dates: start: 20190102
  5. RYZODEG 70/30 [Concomitant]
     Active Substance: INSULIN ASPART\INSULIN DEGLUDEC
     Indication: Type 2 diabetes mellitus
     Dosage: YES
     Dates: start: 20190529
  6. IRBESARTAN [Concomitant]
     Active Substance: IRBESARTAN
     Indication: Essential hypertension
     Dates: start: 20190911, end: 20220713
  7. IRBESARTAN [Concomitant]
     Active Substance: IRBESARTAN
     Dates: start: 20220812, end: 20220813
  8. IRBESARTAN [Concomitant]
     Active Substance: IRBESARTAN
     Dates: start: 20220817
  9. EZETIMIBE\ROSUVASTATIN [Concomitant]
     Active Substance: EZETIMIBE\ROSUVASTATIN
     Indication: Hyperlipidaemia
     Dates: start: 20200205, end: 20220713
  10. MEGESTROL ACETATE [Concomitant]
     Active Substance: MEGESTROL ACETATE
     Indication: Decreased appetite
     Dosage: NO
     Dates: start: 20210622
  11. RABEONE [Concomitant]
     Indication: Dyspepsia
     Dosage: GIVEN FOR PROPHYLAXIS IS YES ;ONGOING: YES
     Dates: start: 20210810
  12. TYLENOL 8HR [Concomitant]
     Active Substance: ACETAMINOPHEN
     Indication: Arthralgia
     Dosage: YES
     Dates: start: 20220518
  13. RINOEBASTEL [Concomitant]
     Indication: Rhinorrhoea
     Dosage: YES
     Dates: start: 20220608, end: 20220713
  14. FAMOTIDINE [Concomitant]
     Active Substance: FAMOTIDINE
     Indication: Dyspepsia
     Dosage: NO
     Dates: start: 20220629, end: 20220721
  15. BUTYLSCOPOLAMINE BROMIDE [Concomitant]
     Active Substance: BUTYLSCOPOLAMINE BROMIDE
     Dosage: NO
     Dates: start: 20220629, end: 20220721
  16. GLICLAZIDE [Concomitant]
     Active Substance: GLICLAZIDE
     Indication: Type 2 diabetes mellitus
     Dosage: NO
     Dates: start: 20220701
  17. HUMULIN R [Concomitant]
     Active Substance: INSULIN HUMAN
     Indication: Type 2 diabetes mellitus
     Dosage: YES
     Dates: start: 20220713, end: 20220723
  18. HUMULIN R [Concomitant]
     Active Substance: INSULIN HUMAN
     Dates: start: 20220808, end: 20220817
  19. SODIUM BICARBONATE [Concomitant]
     Active Substance: SODIUM BICARBONATE
     Indication: Fatigue
     Dosage: 3 AMPULE
     Route: 042
     Dates: start: 20220713, end: 20220713
  20. SODIUM BICARBONATE [Concomitant]
     Active Substance: SODIUM BICARBONATE
     Indication: Blood bicarbonate decreased
     Dates: start: 20220728, end: 20220728
  21. PENNEL (SOUTH KOREA) [Concomitant]
     Indication: Aspartate aminotransferase increased
     Dosage: NO
     Dates: start: 20220713, end: 20220720
  22. PENNEL (SOUTH KOREA) [Concomitant]
     Indication: Hepatic failure
     Dosage: NO
     Dates: start: 20220811, end: 20220817
  23. PENNEL (SOUTH KOREA) [Concomitant]
     Indication: Alanine aminotransferase increased
     Route: 048
     Dates: start: 20220721, end: 20220810
  24. URSODIOL [Concomitant]
     Active Substance: URSODIOL
     Indication: Aspartate aminotransferase increased
     Dosage: NO
     Dates: start: 20220713, end: 20220720
  25. URSODIOL [Concomitant]
     Active Substance: URSODIOL
     Indication: Hepatic failure
     Dosage: NO
     Dates: start: 20220811, end: 20220817
  26. URSODIOL [Concomitant]
     Active Substance: URSODIOL
     Indication: Alanine aminotransferase increased
     Route: 048
     Dates: start: 20220721
  27. EZETIMIBE [Concomitant]
     Active Substance: EZETIMIBE
     Indication: Hyperlipidaemia
     Dosage: YES
     Dates: start: 20220714, end: 20220728
  28. CRESNON [Concomitant]
     Indication: Hyperlipidaemia
     Dosage: NO
     Dates: start: 20220714, end: 20220728
  29. LINAGLIPTIN [Concomitant]
     Active Substance: LINAGLIPTIN
     Indication: Type 2 diabetes mellitus
     Dates: start: 20220714
  30. TRAMADOL HYDROCHLORIDE [Concomitant]
     Active Substance: TRAMADOL HYDROCHLORIDE
     Indication: Headache
     Dosage: GIVEN FOR PROPHYLAXIS IS YES ;ONGOING: NO
     Dates: start: 20220714, end: 20220714
  31. TRAMADOL HYDROCHLORIDE [Concomitant]
     Active Substance: TRAMADOL HYDROCHLORIDE
     Indication: Arthralgia
     Dosage: GIVEN FOR PROPHYLAXIS IS YES ;ONGOING: NO
     Dates: start: 20220722, end: 20220722
  32. TRAMADOL HYDROCHLORIDE [Concomitant]
     Active Substance: TRAMADOL HYDROCHLORIDE
     Indication: Urinary tract infection
     Dates: start: 20220723, end: 20220802
  33. TRAMADOL HYDROCHLORIDE [Concomitant]
     Active Substance: TRAMADOL HYDROCHLORIDE
     Dates: start: 20220817
  34. TRAMADOL HYDROCHLORIDE [Concomitant]
     Active Substance: TRAMADOL HYDROCHLORIDE
     Route: 042
     Dates: start: 20220812, end: 20220812
  35. HYDROCORTISONE [Concomitant]
     Active Substance: HYDROCORTISONE
     Indication: Adrenal insufficiency
     Dosage: GIVEN FOR PROPHYLAXIS IS YES ;ONGOING: NO
     Dates: start: 20220718, end: 20220727
  36. HYDROCORTISONE [Concomitant]
     Active Substance: HYDROCORTISONE
     Route: 048
     Dates: start: 20220728, end: 20220802
  37. HYDROCORTISONE [Concomitant]
     Active Substance: HYDROCORTISONE
     Route: 048
     Dates: start: 20220803
  38. TOPANUSOL [Concomitant]
     Dosage: NO
     Dates: start: 20220719, end: 20220723
  39. TOPANUSOL [Concomitant]
     Dates: start: 20220808, end: 20220817
  40. BROPIUM [Concomitant]
     Dosage: GIVEN FOR PROPHYLAXIS IS YES ;ONGOING: NO
     Dates: start: 20220719, end: 20220719
  41. BROPIUM [Concomitant]
     Dates: start: 20220720, end: 20220720
  42. GASOCOL [Concomitant]
     Dosage: NO
     Dates: start: 20220719, end: 20220719
  43. GASOCOL [Concomitant]
     Dates: start: 20220720, end: 20220720
  44. MIDAZOLAM [Concomitant]
     Active Substance: MIDAZOLAM
     Dates: start: 20220719, end: 20220719
  45. MIDAZOLAM [Concomitant]
     Active Substance: MIDAZOLAM
     Dates: start: 20220720, end: 20220720
  46. HUMAN RED BLOOD CELL [Concomitant]
     Active Substance: HUMAN RED BLOOD CELL
     Indication: Anaemia
     Dosage: 2 U
     Route: 042
     Dates: start: 20220720, end: 20220720
  47. PHOSTEN [Concomitant]
     Indication: Hypophosphataemia
     Dates: start: 20220721, end: 20220721
  48. PHOSTEN [Concomitant]
     Dates: start: 20220811, end: 20220811
  49. PHOSTEN [Concomitant]
     Dosage: NO
     Dates: start: 20220816, end: 20220816
  50. GODEX (SOUTH KOREA) [Concomitant]
     Indication: Aspartate aminotransferase increased
     Route: 048
     Dates: start: 20220721, end: 20220810
  51. TASNA [Concomitant]
     Indication: Blood bicarbonate decreased
     Dates: start: 20220721
  52. ORNITHINE ASPARTATE [Concomitant]
     Active Substance: ORNITHINE ASPARTATE
     Indication: Aspartate aminotransferase increased
     Route: 042
     Dates: start: 20220728, end: 20220728
  53. CELEBREX [Concomitant]
     Active Substance: CELECOXIB
     Indication: Arthralgia
     Dates: start: 20220803, end: 20220810
  54. DIABEX [Concomitant]
     Active Substance: METFORMIN HYDROCHLORIDE
     Indication: Type 2 diabetes mellitus
     Dates: start: 20220809, end: 20220810
  55. METFORMIN HYDROCHLORIDE [Concomitant]
     Active Substance: METFORMIN HYDROCHLORIDE
     Indication: Type 2 diabetes mellitus
     Dates: start: 20220810
  56. FOTAGEL [Concomitant]
     Indication: Diarrhoea
     Dates: start: 20220811, end: 20220815
  57. NAK200 [Concomitant]
     Indication: Hypokalaemia
     Dates: start: 20220811, end: 20220811
  58. NAK200 [Concomitant]
     Dates: start: 20220814, end: 20220814
  59. ACETAMINOPHEN\TRAMADOL [Concomitant]
     Active Substance: ACETAMINOPHEN\TRAMADOL
     Indication: Arthralgia
     Dates: start: 20220811
  60. TAZOPERAN [Concomitant]
     Indication: Urinary tract infection
     Route: 042
     Dates: start: 20220812, end: 20220817
  61. TEICOCIN [Concomitant]
     Indication: Urinary tract infection
     Route: 042
     Dates: start: 20220812, end: 20220813
  62. TEICOCIN [Concomitant]
     Route: 042
     Dates: start: 20220815, end: 20220816
  63. PROPACETAMOL HYDROCHLORIDE [Concomitant]
     Active Substance: PROPACETAMOL HYDROCHLORIDE
     Indication: Urinary tract infection
     Route: 042
     Dates: start: 20220812, end: 20220812
  64. CINALONG [Concomitant]
     Indication: Essential hypertension
     Dates: start: 20220812, end: 20220813
  65. HARNAL [Concomitant]
     Active Substance: TAMSULOSIN HYDROCHLORIDE
     Indication: Dysuria
     Dates: start: 20220812
  66. MECKOOL [Concomitant]
     Indication: Dyspepsia
     Dates: start: 20220813, end: 20220813
  67. POTASSIUM CHLORIDE [Concomitant]
     Active Substance: POTASSIUM CHLORIDE
     Indication: Hypokalaemia
     Dates: start: 20220814, end: 20220815
  68. DEXTROSE + NAK [Concomitant]
     Indication: Hypokalaemia
     Dates: start: 20220814, end: 20220815
  69. MAGNESIUM SULFATE [Concomitant]
     Active Substance: MAGNESIUM SULFATE
     Indication: Hypomagnesaemia
     Dates: start: 20220816, end: 20220816
  70. PAXLOVID [Concomitant]
     Active Substance: NIRMATRELVIR\RITONAVIR
     Indication: COVID-19
     Dates: start: 20220817, end: 20220822
  71. COUGH SYRUP [CHLORPHENAMINE;DIHYDROCODEINE;METHYLEPHEDRINE] [Concomitant]
     Indication: COVID-19
     Dates: start: 20220817, end: 20220824

REACTIONS (1)
  - Urinary tract infection [Recovered/Resolved]

NARRATIVE: CASE EVENT DATE: 20220812
